FAERS Safety Report 6557490-8 (Version None)
Quarter: 2010Q1

REPORT INFORMATION
  Report Type: 
  Country: None (occurrence: None)
  Receive Date: 20100129
  Receipt Date: 20100119
  Transmission Date: 20100710
  Serious: Yes (Hospitalization)
  Sender: FDA-Public Use
  Company Number: GB-ROCHE-680417

PATIENT
  Sex: Female

DRUGS (7)
  1. CAPECITABINE [Suspect]
     Indication: MALIGNANT HEPATOBILIARY NEOPLASM
     Dosage: LAST DOSE ON 29 JULY 2009, CURRENT CYCLE 3 (14 DAYS COMPLETED)
     Route: 065
  2. PARACETAMOL [Concomitant]
     Indication: ANALGESIC THERAPY
     Route: 048
     Dates: start: 20090806
  3. ORAMORPH SR [Concomitant]
     Indication: ANALGESIC THERAPY
     Dosage: FREQUENCY: AS DESIRED.
     Route: 048
     Dates: start: 20090806
  4. LOPERAMIDE [Concomitant]
     Indication: DIARRHOEA
     Route: 048
     Dates: start: 20090725
  5. METOCLOPRAMIDE [Concomitant]
     Indication: NAUSEA
     Route: 048
     Dates: start: 20090716, end: 20090805
  6. ZOPICLONE [Concomitant]
     Indication: SOMNOLENCE
     Dosage: FREQUENCY: DAILY; DOSE: 3.75- 7.5 MG.
     Route: 048
     Dates: start: 20090716, end: 20090805
  7. BENDROFLUMETHIAZIDE [Concomitant]
     Indication: HYPOTENSION
     Route: 048
     Dates: start: 20090806

REACTIONS (4)
  - ARTHRALGIA [None]
  - DIARRHOEA [None]
  - ILL-DEFINED DISORDER [None]
  - STOMATITIS [None]
